FAERS Safety Report 9151117 (Version 2)
Quarter: 2014Q1

REPORT INFORMATION
  Report Type: Report from Study
  Country: ES (occurrence: ES)
  Receive Date: 20130308
  Receipt Date: 20140321
  Transmission Date: 20141002
  Serious: Yes (Death, Hospitalization)
  Sender: FDA-Public Use
  Company Number: ES-CELGENEUS-144-21880-13011829

PATIENT
  Age: 76 Year
  Sex: Female
  Weight: 98 kg

DRUGS (13)
  1. REVLIMID [Suspect]
     Indication: PRIMARY AMYLOIDOSIS
     Dosage: 15 MILLIGRAM
     Route: 048
     Dates: start: 20121228
  2. REVLIMID [Suspect]
     Route: 048
     Dates: start: 20130107, end: 20130110
  3. DEXAMETHASONE [Suspect]
     Indication: PRIMARY AMYLOIDOSIS
     Dosage: 20 MILLIGRAM
     Route: 048
     Dates: start: 20121228, end: 20130110
  4. CYCLOPHOSPHAMIDE [Suspect]
     Indication: PRIMARY AMYLOIDOSIS
     Dosage: 570 MILLIGRAM
     Route: 041
     Dates: start: 20121228, end: 20130101
  5. FUROSEMIDE [Concomitant]
     Indication: PRODUCT USED FOR UNKNOWN INDICATION
     Dosage: 40 MILLIGRAM
     Route: 065
  6. ALDACTONE [Concomitant]
     Indication: PRODUCT USED FOR UNKNOWN INDICATION
     Dosage: 100 MILLIGRAM
     Route: 065
  7. CAPTOPRIL [Concomitant]
     Indication: PRODUCT USED FOR UNKNOWN INDICATION
     Dosage: 75 MILLIGRAM
     Route: 065
  8. LEVOTIROXIN [Concomitant]
     Indication: PRODUCT USED FOR UNKNOWN INDICATION
     Dosage: 50 MICROGRAM
     Route: 065
  9. LORAZEPAM [Concomitant]
     Indication: PRODUCT USED FOR UNKNOWN INDICATION
     Dosage: 10 MILLIGRAM
     Route: 065
  10. LACTULOSE [Concomitant]
     Indication: PRODUCT USED FOR UNKNOWN INDICATION
     Route: 065
  11. ENOXAPARIN SODIUM [Concomitant]
     Indication: PRODUCT USED FOR UNKNOWN INDICATION
     Route: 065
  12. ZALDIAR [Concomitant]
     Indication: PRODUCT USED FOR UNKNOWN INDICATION
     Route: 065
  13. ENCONCER [Concomitant]
     Indication: PRODUCT USED FOR UNKNOWN INDICATION
     Dosage: 2.5 MILLIGRAM
     Route: 065

REACTIONS (2)
  - Cardio-respiratory arrest [Fatal]
  - Renal failure [Fatal]
